FAERS Safety Report 9399162 (Version 1)
Quarter: 2013Q3

REPORT INFORMATION
  Report Type: Spontaneous
  Country: DE (occurrence: None)
  Receive Date: 20130709
  Receipt Date: 20130709
  Transmission Date: 20140515
  Serious: Yes (Hospitalization, Other)
  Sender: FDA-Public Use
  Company Number: DAV-AE-LOR-13-05

PATIENT
  Age: 45 Year
  Sex: Female

DRUGS (4)
  1. LORAZEPAM [Suspect]
     Indication: OVERDOSE
  2. QUETIAPINE SUSTAINED-RELEASE (SR) [Concomitant]
  3. SERTRALINE [Concomitant]
  4. ZOPICLONE [Concomitant]

REACTIONS (3)
  - Toxicity to various agents [None]
  - Bezoar [None]
  - Overdose [None]
